FAERS Safety Report 14076194 (Version 1)
Quarter: 2017Q4

REPORT INFORMATION
  Report Type: Spontaneous
  Country: US (occurrence: US)
  Receive Date: 20171010
  Receipt Date: 20171010
  Transmission Date: 20180321
  Serious: No
  Sender: FDA-Public Use
  Company Number: US-MYLANLABS-2017M1012383

PATIENT
  Sex: Female
  Weight: 74.83 kg

DRUGS (1)
  1. ATENOLOL TABLETS, USP [Suspect]
     Active Substance: ATENOLOL
     Indication: HYPERTENSION
     Dosage: 100 MG, QD, EVERY MORNING
     Route: 048
     Dates: start: 20170101, end: 20170114

REACTIONS (2)
  - Drug ineffective [Recovered/Resolved]
  - Heart rate increased [Recovered/Resolved]
